FAERS Safety Report 8965817 (Version 1)
Quarter: 2012Q4

REPORT INFORMATION
  Report Type: 
  Country: US (occurrence: US)
  Receive Date: 20121217
  Receipt Date: 20121217
  Transmission Date: 20130627
  Serious: No
  Sender: FDA-Public Use
  Company Number: US-BAYER-2012-129852

PATIENT
  Age: 60 Year
  Sex: Male

DRUGS (7)
  1. LEVITRA [Suspect]
     Indication: ERECTILE DYSFUNCTION
     Dosage: 20 mg, ONCE
     Route: 048
     Dates: start: 201211, end: 201211
  2. MUSCLE RELAXANTS [Concomitant]
  3. ANALGESICS [Concomitant]
  4. IBUPROFEN [Concomitant]
  5. SAW PALMETTO [Concomitant]
  6. FISH OIL [Concomitant]
  7. VITAMINS [Concomitant]

REACTIONS (1)
  - Drug ineffective [None]
